FAERS Safety Report 8309413-9 (Version None)
Quarter: 2012Q2

REPORT INFORMATION
  Report Type: 
  Country: None (occurrence: None)
  Receive Date: 20120420
  Receipt Date: 20120405
  Transmission Date: 20120825
  Serious: Yes (Disabling, Other)
  Sender: FDA-Public Use
  Company Number: 2012MA004503

PATIENT
  Age: 48 Year
  Sex: Female
  Weight: 52.1637 kg

DRUGS (1)
  1. BUPROPION HYDROBROMIDE [Suspect]
     Indication: DEPRESSION
     Dosage: 100 MG;QD;PO
     Route: 048

REACTIONS (12)
  - DECREASED APPETITE [None]
  - FALL [None]
  - DIZZINESS [None]
  - NAUSEA [None]
  - CONCUSSION [None]
  - HEADACHE [None]
  - VISION BLURRED [None]
  - HYPOREFLEXIA [None]
  - PRODUCT ODOUR ABNORMAL [None]
  - RETCHING [None]
  - DEPRESSION [None]
  - WEIGHT DECREASED [None]
